FAERS Safety Report 9760492 (Version 1)
Quarter: 2013Q4

REPORT INFORMATION
  Report Type: Spontaneous
  Country: US (occurrence: US)
  Receive Date: 20131216
  Receipt Date: 20131216
  Transmission Date: 20140711
  Serious: No
  Sender: FDA-Public Use
  Company Number: US-BIOGENIDEC-2013BI095042

PATIENT
  Age: 51 Year
  Sex: Female
  Weight: 89 kg

DRUGS (11)
  1. TECFIDERA [Suspect]
     Indication: MULTIPLE SCLEROSIS
     Route: 048
     Dates: start: 20130916
  2. TECFIDERA [Suspect]
     Indication: MULTIPLE SCLEROSIS
     Route: 048
  3. BACLOFEN [Concomitant]
  4. VITAMIN D [Concomitant]
  5. FOLIC ACID [Concomitant]
  6. VITAMIN C [Concomitant]
  7. IRON [Concomitant]
  8. VITAMIN E [Concomitant]
  9. KEPPRA [Concomitant]
  10. KLONOPIN [Concomitant]
  11. PANTOPRAZOLE [Concomitant]

REACTIONS (2)
  - Fatigue [Unknown]
  - Flushing [Unknown]
